FAERS Safety Report 18461220 (Version 1)
Quarter: 2020Q4

REPORT INFORMATION
  Report Type: Spontaneous
  Country: US (occurrence: US)
  Receive Date: 20201103
  Receipt Date: 20201103
  Transmission Date: 20210114
  Serious: Yes (Hospitalization)
  Sender: FDA-Public Use
  Company Number: None

PATIENT
  Age: 11 Year
  Sex: Female

DRUGS (1)
  1. EVEROLIMUS TAB 2.5MG [Suspect]
     Active Substance: EVEROLIMUS
     Route: 048
     Dates: start: 201907

REACTIONS (1)
  - Seizure [None]

NARRATIVE: CASE EVENT DATE: 20201101
